FAERS Safety Report 8631944 (Version 2)
Quarter: 2014Q3

REPORT INFORMATION
  Report Type: Spontaneous
  Country: FR (occurrence: FR)
  Receive Date: 20120625
  Receipt Date: 20140801
  Transmission Date: 20150326
  Serious: Yes (Death, Hospitalization, Other)
  Sender: FDA-Public Use
  Company Number: FR-RANBAXY-2012R1-57179

PATIENT
  Age: 58 Year
  Sex: Male
  Weight: 48 kg

DRUGS (8)
  1. DIDANOSINE. [Suspect]
     Active Substance: DIDANOSINE
     Dosage: 250MG DAILY
  2. DIDANOSINE. [Suspect]
     Active Substance: DIDANOSINE
     Indication: HIV INFECTION
     Dosage: 400 MG, QID
     Route: 065
  3. NELFINAVIR [Suspect]
     Active Substance: NELFINAVIR
     Indication: HIV INFECTION
     Route: 065
  4. NEVIRAPINE. [Suspect]
     Active Substance: NEVIRAPINE
     Indication: HIV INFECTION
  5. ZIDOVUDINE. [Suspect]
     Active Substance: ZIDOVUDINE
     Indication: HIV INFECTION
     Dosage: 300 MG, BID
     Route: 065
  6. LAMIVUDINE. [Suspect]
     Active Substance: LAMIVUDINE
     Indication: HIV INFECTION
     Dosage: UNK UNK, DAILY
     Route: 065
  7. EFAVIRENZ [Suspect]
     Active Substance: EFAVIRENZ
     Indication: HIV INFECTION
     Route: 065
  8. LOPINAVIR [Suspect]
     Active Substance: LOPINAVIR
     Indication: HIV INFECTION
     Route: 065

REACTIONS (9)
  - Portal vein thrombosis [Fatal]
  - Varices oesophageal [Fatal]
  - Lipodystrophy acquired [Fatal]
  - Osteoporosis [Fatal]
  - Nodular regenerative hyperplasia [Fatal]
  - Portal hypertension [Fatal]
  - Protein-losing gastroenteropathy [Fatal]
  - Ascites [Fatal]
  - Gynaecomastia [Unknown]
